FAERS Safety Report 5139277-6 (Version None)
Quarter: 2006Q4

REPORT INFORMATION
  Report Type: 
  Country: None (occurrence: None)
  Receive Date: 20061030
  Receipt Date: 20061025
  Transmission Date: 20070319
  Serious: Yes (Other)
  Sender: FDA-Public Use
  Company Number: 2006UW20611

PATIENT
  Age: 58 Year
  Sex: Female

DRUGS (10)
  1. ARIMIDEX [Suspect]
     Route: 048
  2. TAMOXIFEN CITRATE [Suspect]
     Route: 048
  3. CALCIUM GLUCONATE [Concomitant]
  4. FOSAMAX [Concomitant]
     Route: 048
  5. METROGEL [Concomitant]
  6. VITAMIN CAP [Concomitant]
  7. NASACORT [Concomitant]
     Route: 055
  8. SYMBICORT [Concomitant]
     Route: 055
  9. VITAMIN A [Concomitant]
  10. VITAMIN E [Concomitant]

REACTIONS (2)
  - EYE DISORDER [None]
  - GLAUCOMA [None]
